FAERS Safety Report 7799140-9 (Version None)
Quarter: 2011Q4

REPORT INFORMATION
  Report Type: 
  Country: None (occurrence: None)
  Receive Date: 20111006
  Receipt Date: 20111004
  Transmission Date: 20120403
  Serious: Yes (Other)
  Sender: FDA-Public Use
  Company Number: JP-PFIZER INC-2011231718

PATIENT
  Age: 63 Year
  Sex: Male

DRUGS (4)
  1. LANSOPRAZOLE [Concomitant]
     Dosage: 15 MG/DAY
     Route: 048
     Dates: start: 20110101, end: 20111001
  2. MUCODYNE [Concomitant]
     Dosage: UNK
     Route: 048
     Dates: start: 20110101, end: 20111001
  3. VARENICLINE TARTRATE [Suspect]
     Indication: SMOKING CESSATION THERAPY
     Dosage: 1 MG/DAY
     Route: 048
     Dates: start: 20101220, end: 20110101
  4. VARENICLINE TARTRATE [Suspect]
     Dosage: 0.5 MG/DAY
     Route: 048
     Dates: start: 20110101, end: 20110203

REACTIONS (6)
  - MEMORY IMPAIRMENT [None]
  - HYPOAESTHESIA ORAL [None]
  - NAUSEA [None]
  - DEPRESSED LEVEL OF CONSCIOUSNESS [None]
  - PRODUCTIVE COUGH [None]
  - NIGHTMARE [None]
